FAERS Safety Report 8207583-4 (Version None)
Quarter: 2012Q1

REPORT INFORMATION
  Report Type: 
  Country: None (occurrence: None)
  Receive Date: 20120314
  Receipt Date: 20120307
  Transmission Date: 20120608
  Serious: Yes (Other)
  Sender: FDA-Public Use
  Company Number: DE-SANOFI-AVENTIS-2012SA015592

PATIENT
  Sex: Male

DRUGS (3)
  1. MULTAQ [Suspect]
     Route: 048
     Dates: end: 20120101
  2. BETA BLOCKING AGENTS [Concomitant]
  3. MARCUMAR [Concomitant]

REACTIONS (2)
  - ARRHYTHMIA [None]
  - HYPERTHYROIDISM [None]
